FAERS Safety Report 8560335 (Version 2)
Quarter: 2012Q4

REPORT INFORMATION
  Report Type: 
  Country: JP (occurrence: JP)
  Receive Date: 20120514
  Receipt Date: 20121008
  Transmission Date: 20130627
  Serious: Yes (Death)
  Sender: FDA-Public Use
  Company Number: JP-SANOFI-AVENTIS-2012SA033715

PATIENT
  Age: 56 Year
  Sex: Male

DRUGS (4)
  1. DOCETAXEL [Suspect]
     Indication: PROSTATE CANCER
     Dosage: days 2,9
     Route: 042
  2. PREDNISOLONE [Suspect]
     Indication: PROSTATE CANCER
     Dosage: days1-21
     Route: 048
  3. ESTRAMUSTINE [Suspect]
     Indication: PROSTATE CANCER
     Dosage: days 1-5, days 8-12
     Route: 048
  4. DEXAMETHASONE [Concomitant]
     Indication: PREMEDICATION
     Route: 042

REACTIONS (1)
  - Myocardial infarction [Fatal]
